FAERS Safety Report 8180361-0 (Version None)
Quarter: 2012Q1

REPORT INFORMATION
  Report Type: 
  Country: None (occurrence: None)
  Receive Date: 20120302
  Receipt Date: 20120229
  Transmission Date: 20120608
  Serious: Yes (Other)
  Sender: FDA-Public Use
  Company Number: JP-PFIZER INC-2012053527

PATIENT

DRUGS (1)
  1. LIPITOR [Suspect]
     Dosage: 220 MG, SINGLE

REACTIONS (2)
  - INTENTIONAL OVERDOSE [None]
  - SUICIDAL IDEATION [None]
